FAERS Safety Report 24784800 (Version 1)
Quarter: 2024Q4

REPORT INFORMATION
  Report Type: Spontaneous
  Country: JP (occurrence: JP)
  Receive Date: 20241228
  Receipt Date: 20241228
  Transmission Date: 20250114
  Serious: Yes (Other)
  Sender: Norvium Bioscience
  Company Number: JP-Norvium Bioscience LLC-079753

PATIENT
  Age: 67 Year
  Sex: Female
  Weight: 53 kg

DRUGS (2)
  1. CISPLATIN [Suspect]
     Active Substance: CISPLATIN
     Indication: Oesophageal squamous cell carcinoma stage IV
     Dosage: GIVEN FROM DAY 1-5 AND 8-12 WITHIN A 28-DAY CYCLE
  2. FLUOROURACIL [Suspect]
     Active Substance: FLUOROURACIL
     Indication: Oesophageal squamous cell carcinoma stage IV
     Dosage: GIVEN FROM DAY 1-5 AND 8-12 WITHIN A 28-DAY CYCLE

REACTIONS (2)
  - Pharyngitis [Recovered/Resolved]
  - Oesophagitis [Recovered/Resolved]
